FAERS Safety Report 8487366-0 (Version None)
Quarter: 2012Q2

REPORT INFORMATION
  Report Type: 
  Country: None (occurrence: None)
  Receive Date: 20120628
  Receipt Date: 20120628
  Transmission Date: 20120825
  Serious: Yes (Death)
  Sender: FDA-Public Use
  Company Number: None

PATIENT
  Sex: Male

DRUGS (6)
  1. PROVIGIL [Suspect]
     Indication: SOMNOLENCE
     Dosage: 200MG ONCE PO
     Route: 048
  2. AMBIEN [Concomitant]
  3. PEPCID [Concomitant]
  4. TRAMADOL HCL [Concomitant]
  5. NEPROXIN [Concomitant]
  6. BLOOD PRESSURE MEDICATION [Concomitant]

REACTIONS (1)
  - COMPLETED SUICIDE [None]
